FAERS Safety Report 7443865-1 (Version None)
Quarter: 2011Q2

REPORT INFORMATION
  Report Type: 
  Country: None (occurrence: None)
  Receive Date: 20110428
  Receipt Date: 20101213
  Transmission Date: 20111010
  Serious: Yes (Hospitalization, Other)
  Sender: FDA-Public Use
  Company Number: US-BAYER-201023176NA

PATIENT
  Age: 22 Year
  Sex: Female
  Weight: 100 kg

DRUGS (24)
  1. YASMIN [Suspect]
     Route: 048
     Dates: start: 20050101, end: 20090101
  2. FIORICET [Concomitant]
     Route: 048
     Dates: end: 20080615
  3. ADVIL [Concomitant]
     Dates: start: 19860101
  4. YAZ [Suspect]
     Indication: CONTRACEPTION
     Route: 048
     Dates: end: 20090215
  5. OCELLA [Suspect]
     Indication: CONTRACEPTION
     Route: 048
     Dates: start: 20081201, end: 20090115
  6. DEPO [Concomitant]
  7. ZANTAC [Concomitant]
     Route: 048
  8. PROZAC [Concomitant]
  9. PREVACID [Concomitant]
     Route: 048
  10. CHOLESTYRAMINE [Concomitant]
  11. YASMIN [Suspect]
     Indication: CONTRACEPTION
     Route: 048
     Dates: end: 20040615
  12. AMBIEN [Concomitant]
     Dosage: 10 1 QD
     Dates: end: 20080615
  13. LUNESTA [Concomitant]
     Dosage: 20 MG QHS
  14. LASIX [Concomitant]
  15. PHENERGAN HCL [Concomitant]
     Dosage: 1 PO Q6
     Route: 048
  16. ALEVE-D SINUS + COLD [Concomitant]
     Dates: start: 20080101
  17. PROZAC [Concomitant]
     Route: 048
  18. MOTRIN [Concomitant]
     Dates: start: 19860101
  19. CIPRO [Concomitant]
     Dates: start: 20081017
  20. PROZAC [Concomitant]
     Indication: MENTAL DISORDER
     Route: 048
  21. PROZAC [Concomitant]
     Route: 048
  22. AMBIEN [Concomitant]
     Dates: start: 20090101
  23. NEXIUM [Concomitant]
     Route: 048
  24. DEPO [Concomitant]

REACTIONS (13)
  - GALLBLADDER DISORDER [None]
  - NAUSEA [None]
  - VOMITING [None]
  - DIARRHOEA HAEMORRHAGIC [None]
  - CHOLECYSTITIS CHRONIC [None]
  - PANCREATITIS [None]
  - POST PROCEDURAL DIARRHOEA [None]
  - GASTRIC PH DECREASED [None]
  - PROCEDURAL PAIN [None]
  - ABDOMINAL PAIN [None]
  - APHAGIA [None]
  - ABDOMINAL DISTENSION [None]
  - ABDOMINAL TENDERNESS [None]
